FAERS Safety Report 15889004 (Version 3)
Quarter: 2019Q2

REPORT INFORMATION
  Report Type: Spontaneous
  Country: US (occurrence: US)
  Receive Date: 20190130
  Receipt Date: 20190529
  Transmission Date: 20190711
  Serious: No
  Sender: FDA-Public Use
  Company Number: US-PFIZER INC-2019037885

PATIENT
  Age: 50 Year
  Sex: Female
  Weight: 97.98 kg

DRUGS (2)
  1. REVATIO [Suspect]
     Active Substance: SILDENAFIL CITRATE
     Indication: CARDIAC DISORDER
     Dosage: 12.5 ML, THREE TIMES A DAY
     Route: 048
  2. REVATIO [Suspect]
     Active Substance: SILDENAFIL CITRATE
     Indication: PULMONARY HYPERTENSION
     Dosage: 20 MG, THREE TIMES A DAY
     Route: 048
     Dates: start: 2017

REACTIONS (2)
  - Malaise [Unknown]
  - Product prescribing error [Unknown]
